FAERS Safety Report 9801396 (Version 1)
Quarter: 2014Q1

REPORT INFORMATION
  Report Type: Spontaneous
  Country: US (occurrence: US)
  Receive Date: 20140107
  Receipt Date: 20140107
  Transmission Date: 20141002
  Serious: Yes (Death, Hospitalization, Other)
  Sender: FDA-Public Use
  Company Number: US-UCBSA-108208

PATIENT
  Age: 67 Year
  Sex: Female

DRUGS (6)
  1. ACETAMINOPHEN /HYDROCODONE [Suspect]
     Dosage: ROUTE: INGESTION
     Route: 048
  2. CLONAZEPAM [Suspect]
     Dosage: ROUTE: INGESTION
     Route: 048
  3. CAFFEINE [Suspect]
     Dosage: ROUTE: INGESTION
     Route: 048
  4. IBUPROFEN [Suspect]
     Dosage: ROUTE: INGESTION
     Route: 048
  5. SALICYLAMIDE [Suspect]
  6. SALICYLATE [Suspect]

REACTIONS (2)
  - Cardio-respiratory arrest [Fatal]
  - Completed suicide [Fatal]
